FAERS Safety Report 4877267-9 (Version None)
Quarter: 2006Q1

REPORT INFORMATION
  Report Type: 
  Country: None (occurrence: None)
  Receive Date: 20060106
  Receipt Date: 20051222
  Transmission Date: 20060701
  Serious: Yes (Hospitalization)
  Sender: FDA-Public Use
  Company Number: 2005JP002497

PATIENT
  Age: 65 Year
  Sex: Male

DRUGS (12)
  1. FUNGUARD (MICAFUNGIN) INJECTION [Suspect]
     Indication: BRONCHOPULMONARY ASPERGILLOSIS
     Dosage: 300  MG, UID/QD, IV DRIP
     Route: 041
     Dates: start: 20051122, end: 20051123
  2. MODACIN (CEFTAZIDIME) [Suspect]
  3. MUCOSOLVAN (AMBROXOL HYDROCHLORIDE) [Concomitant]
  4. MUCODYNE (CARBOCISTEINE) [Concomitant]
  5. BISOLVON (BROMHEXINE HYDROCHLORIDE) [Concomitant]
  6. ONON (FRANLUKAST) [Concomitant]
  7. CLARITHROMYCIN [Concomitant]
  8. ITRACONAZOLE [Concomitant]
  9. HOKUNALIN (TULOBUTEROL HYDROCHLORIDE) [Concomitant]
  10. NITRODERM [Concomitant]
  11. ALOSENN (TARAXACUM OFFICINALE, ACHILLEA MILLEFOLIUM) [Concomitant]
  12. MAGNESIMUM OXIDE (MAGNESIUM OXIDE) [Concomitant]

REACTIONS (3)
  - ABDOMINAL PAIN [None]
  - NEUTROPHIL COUNT INCREASED [None]
  - PYREXIA [None]
